FAERS Safety Report 6843964-9 (Version None)
Quarter: 2010Q3

REPORT INFORMATION
  Report Type: 
  Country: None (occurrence: None)
  Receive Date: 20100715
  Receipt Date: 20100705
  Transmission Date: 20110219
  Serious: Yes (Other)
  Sender: FDA-Public Use
  Company Number: JP-PFIZER INC-2010083273

PATIENT

DRUGS (2)
  1. ALDACTONE [Suspect]
  2. LOXONIN [Concomitant]
     Dosage: 180MG, DAILY
     Route: 048

REACTIONS (1)
  - BLOOD POTASSIUM DECREASED [None]
